FAERS Safety Report 7709933 (Version 6)
Quarter: 2012Q4

REPORT INFORMATION
  Report Type: 
  Country: US (occurrence: US)
  Receive Date: 20101214
  Receipt Date: 20121121
  Transmission Date: 20130627
  Serious: No
  Sender: FDA-Public Use
  Company Number: US-ASTRAZENECA-2010SE47805

PATIENT
  Age: 71 Year
  Sex: Female

DRUGS (2)
  1. CRESTOR [Suspect]
     Route: 048
  2. CRESTOR [Suspect]
     Route: 048

REACTIONS (8)
  - Feeling abnormal [Unknown]
  - Renal disorder [Unknown]
  - Road traffic accident [Unknown]
  - Visual field defect [Unknown]
  - Stress [Unknown]
  - Blood cholesterol increased [Unknown]
  - Headache [Unknown]
  - Drug ineffective [Unknown]
